FAERS Safety Report 20672430 (Version 2)
Quarter: 2024Q2

REPORT INFORMATION
  Report Type: Spontaneous
  Country: US (occurrence: None)
  Receive Date: 20220405
  Receipt Date: 20240607
  Transmission Date: 20240716
  Serious: Yes (Hospitalization)
  Sender: FDA-Public Use
  Company Number: US-ROCHE-3063961

PATIENT
  Sex: Female

DRUGS (14)
  1. XOLAIR [Suspect]
     Active Substance: OMALIZUMAB
     Indication: Asthma
     Dosage: (STRENGTH:150 MG)
     Route: 058
     Dates: start: 20170802
  2. AZITHROMYCIN [Concomitant]
     Active Substance: AZITHROMYCIN
  3. BREO ELLIPTA [Concomitant]
     Active Substance: FLUTICASONE FUROATE\VILANTEROL TRIFENATATE
  4. CLONIDINE [Concomitant]
     Active Substance: CLONIDINE
  5. CLOPIDOGREL [Concomitant]
     Active Substance: CLOPIDOGREL BISULFATE
  6. FAMOTIDINE [Concomitant]
     Active Substance: FAMOTIDINE
  7. FUROSEMIDE [Concomitant]
     Active Substance: FUROSEMIDE
  8. HUMALOG [Concomitant]
     Active Substance: INSULIN LISPRO
  9. LORAZEPAM [Concomitant]
     Active Substance: LORAZEPAM
  10. LOSARTAN [Concomitant]
     Active Substance: LOSARTAN
  11. MONTELUKAST [Concomitant]
     Active Substance: MONTELUKAST SODIUM
  12. MYRBETRIQ [Concomitant]
     Active Substance: MIRABEGRON
  13. PREDNISONE [Concomitant]
     Active Substance: PREDNISONE
  14. FLUTICASONE [Concomitant]
     Active Substance: FLUTICASONE

REACTIONS (4)
  - Hypertension [Unknown]
  - Dyspnoea [Unknown]
  - Condition aggravated [Unknown]
  - Quality of life decreased [Unknown]
